FAERS Safety Report 5039058-8 (Version None)
Quarter: 2006Q2

REPORT INFORMATION
  Report Type: 
  Country: None (occurrence: None)
  Receive Date: 20060629
  Receipt Date: 20001019
  Transmission Date: 20061013
  Serious: Yes (Other)
  Sender: FDA-Public Use
  Company Number: NO-AMGEN-US184214

PATIENT
  Sex: Female

DRUGS (5)
  1. ENBREL [Suspect]
     Indication: RHEUMATOID ARTHRITIS
     Route: 058
     Dates: start: 20000510, end: 20000801
  2. TEGRETOL [Suspect]
     Route: 065
  3. VOLTAREN [Concomitant]
     Route: 065
  4. LOSEC [Concomitant]
     Route: 065
  5. KLIOGEST [Concomitant]

REACTIONS (2)
  - BRONCHIECTASIS [None]
  - PULMONARY FIBROSIS [None]
